FAERS Safety Report 20985872 (Version 4)
Quarter: 2022Q3

REPORT INFORMATION
  Report Type: Spontaneous
  Country: US (occurrence: US)
  Receive Date: 20220621
  Receipt Date: 20220923
  Transmission Date: 20221026
  Serious: No
  Sender: FDA-Public Use
  Company Number: US-ORGANON-O2206USA000671

PATIENT
  Sex: Female

DRUGS (5)
  1. ASMANEX [Suspect]
     Active Substance: MOMETASONE FUROATE
     Dosage: 2 PUFFS TWICE A DAY (120 DOSE)
  2. ASMANEX [Suspect]
     Active Substance: MOMETASONE FUROATE
     Dosage: 2 PUFFS TWICE A DAY (120 DOSE)
  3. ASMANEX [Suspect]
     Active Substance: MOMETASONE FUROATE
     Dosage: 1 PUFFS TWICE A DAY (120 DOSE)
  4. ASMANEX [Suspect]
     Active Substance: MOMETASONE FUROATE
     Dosage: 120 DOSE
     Dates: start: 20220807
  5. ASMANEX [Suspect]
     Active Substance: MOMETASONE FUROATE
     Dosage: 120 DOSE
     Dates: start: 20220807

REACTIONS (13)
  - Device malfunction [Unknown]
  - Poor quality device used [Unknown]
  - Device malfunction [Unknown]
  - Poor quality device used [Unknown]
  - Device malfunction [Unknown]
  - Poor quality device used [Unknown]
  - Device malfunction [Unknown]
  - Poor quality device used [Unknown]
  - Product outer packaging issue [Unknown]
  - COVID-19 [Unknown]
  - Device malfunction [Unknown]
  - Poor quality device used [Unknown]
  - Bronchitis [Unknown]

NARRATIVE: CASE EVENT DATE: 20220101
